FAERS Safety Report 7701242-X (Version None)
Quarter: 2011Q3

REPORT INFORMATION
  Report Type: 
  Country: None (occurrence: None)
  Receive Date: 20110822
  Receipt Date: 20110816
  Transmission Date: 20111222
  Serious: Yes (Death)
  Sender: FDA-Public Use
  Company Number: US-GLAXOSMITHKLINE-A0941254A

PATIENT
  Age: 49 Year
  Sex: Female

DRUGS (3)
  1. WINRHO SD [Concomitant]
     Indication: IDIOPATHIC THROMBOCYTOPENIC PURPURA
     Dates: start: 20100826
  2. CORTICOSTEROIDS [Concomitant]
     Indication: IDIOPATHIC THROMBOCYTOPENIC PURPURA
     Dates: start: 20100714
  3. PROMACTA [Suspect]
     Indication: THROMBOCYTOPENIA
     Dates: start: 20100826

REACTIONS (1)
  - NEOPLASM MALIGNANT [None]
